FAERS Safety Report 16485264 (Version 14)
Quarter: 2024Q2

REPORT INFORMATION
  Report Type: Spontaneous
  Country: AT (occurrence: AT)
  Receive Date: 20190627
  Receipt Date: 20240613
  Transmission Date: 20240716
  Serious: Yes (Hospitalization)
  Sender: FDA-Public Use
  Company Number: PHHY2019AT142910

PATIENT
  Age: 40 Year
  Sex: Female
  Weight: 60 kg

DRUGS (40)
  1. LETROZOLE [Suspect]
     Active Substance: LETROZOLE
     Indication: HER2 positive breast cancer
     Dosage: 2.5 MG, QD (MOST RECENT DOSE ADMINISTERED ON: 25/FEB/2020)
     Route: 048
     Dates: start: 20180426, end: 20200225
  2. LEUPROLIDE ACETATE [Suspect]
     Active Substance: ISOPROPYL ALCOHOL\LEUPROLIDE ACETATE
     Indication: HER2 positive breast cancer
     Dosage: 11.25 MG, Q3MO
     Route: 058
     Dates: start: 201804, end: 20200225
  3. HERCEPTIN [Suspect]
     Active Substance: TRASTUZUMAB
     Indication: HER2 positive breast cancer
     Dosage: 600 MG, Q3W (MOST RECENT DOSE ON 27/DEC/2019)
     Route: 058
     Dates: start: 20180503, end: 20190502
  4. HERCEPTIN [Suspect]
     Active Substance: TRASTUZUMAB
     Dosage: 600 MG, Q3W (MOST RECENT DOSE ON 27/DEC/2019)
     Route: 058
     Dates: start: 20190509, end: 20191227
  5. PERJETA [Suspect]
     Active Substance: PERTUZUMAB
     Indication: HER2 positive breast cancer
     Dosage: 840 MG, Q3W
     Route: 058
     Dates: start: 20181122, end: 20181122
  6. PERJETA [Suspect]
     Active Substance: PERTUZUMAB
     Dosage: 420 MG, Q3W MOST RECENT DOSE ON 27/DEC/2019
     Route: 042
     Dates: start: 201811, end: 201811
  7. PERJETA [Suspect]
     Active Substance: PERTUZUMAB
     Dosage: 420 MG, Q3W
     Route: 058
     Dates: start: 20190509, end: 20191227
  8. PERJETA [Suspect]
     Active Substance: PERTUZUMAB
     Dosage: 420 MG, Q3W
     Route: 058
     Dates: start: 20181213, end: 20190502
  9. TRENANTONE [Suspect]
     Active Substance: LEUPROLIDE ACETATE
     Indication: HER2 positive breast cancer
     Dosage: 11.25 MG, Q3MO (MOST RECENT DOSE ADMINISTERED ON: 25/FEB/2020)
     Route: 058
     Dates: start: 201804
  10. DENOSUMAB [Suspect]
     Active Substance: DENOSUMAB
     Indication: HER2 positive breast cancer
     Dosage: 120 MG, QMO
     Route: 058
     Dates: start: 20190319, end: 201904
  11. DENOSUMAB [Suspect]
     Active Substance: DENOSUMAB
     Dosage: UNK
     Route: 058
     Dates: start: 20181129
  12. DENOSUMAB [Suspect]
     Active Substance: DENOSUMAB
     Dosage: 120 MG, QMO (MOST RECENT DOSE OF DENOSUMAB 19/MAR/2019, 29/NOV/2018)
     Route: 058
     Dates: start: 201611, end: 20181129
  13. TRASTUZUMAB [Suspect]
     Active Substance: TRASTUZUMAB
     Indication: HER2 positive breast cancer
     Dosage: 600 MG, TIW (MOST RECENT DOSE ON 27/DEC/2019)
     Route: 058
     Dates: start: 20180503, end: 20190502
  14. ADO-TRASTUZUMAB EMTANSINE [Suspect]
     Active Substance: ADO-TRASTUZUMAB EMTANSINE
     Indication: HER2 positive breast cancer
     Dosage: 3.6 MG/KG, Q4W (MOST RECENT DOSE PRIOR TO THE EVENT: 21/AUG/2017MOST RECENT DOSE PRIOR TO THE EVENT:
     Route: 042
     Dates: start: 20161114, end: 20170424
  15. ADO-TRASTUZUMAB EMTANSINE [Suspect]
     Active Substance: ADO-TRASTUZUMAB EMTANSINE
     Dosage: 600 MG, Q3W
     Route: 042
     Dates: start: 20180305
  16. ADO-TRASTUZUMAB EMTANSINE [Suspect]
     Active Substance: ADO-TRASTUZUMAB EMTANSINE
     Dosage: 3.6 MG/KG, QD
     Route: 042
     Dates: start: 20170522, end: 20170522
  17. ADO-TRASTUZUMAB EMTANSINE [Suspect]
     Active Substance: ADO-TRASTUZUMAB EMTANSINE
     Dosage: 3.6 MG/KG, Q4W
     Route: 042
     Dates: start: 20170821, end: 20171120
  18. PERTUZUMAB [Suspect]
     Active Substance: PERTUZUMAB
     Indication: HER2 positive breast cancer
     Dosage: 840 MG, TIW (MOST RECENT DOSE PRIOR TO THE EVENT: 22/NOV/2018)
     Route: 058
     Dates: start: 20181122, end: 20181122
  19. PERTUZUMAB [Suspect]
     Active Substance: PERTUZUMAB
     Dosage: MOST RECENT DOSE ON 27/DEC/2019
     Route: 058
     Dates: start: 20190509, end: 20191227
  20. EMEND [Concomitant]
     Active Substance: APREPITANT
     Indication: Product used for unknown indication
     Dosage: 80 MG (ONGOING = CHECKED)
     Route: 065
     Dates: start: 20161115, end: 20200417
  21. XGEVA [Concomitant]
     Active Substance: DENOSUMAB
     Indication: HER2 positive breast cancer
     Dosage: 120 MG, QMO (MOST RECENT DOSE OF DENOSUMAB 19/MAR/2019, 29/NOV/2018)
     Route: 058
     Dates: start: 201611, end: 201904
  22. XGEVA [Concomitant]
     Active Substance: DENOSUMAB
     Dosage: 120 MG, QMO
     Route: 065
     Dates: start: 2016, end: 20181129
  23. XGEVA [Concomitant]
     Active Substance: DENOSUMAB
     Dosage: UNK
     Route: 058
     Dates: start: 20181129
  24. XGEVA [Concomitant]
     Active Substance: DENOSUMAB
     Dosage: UNK
     Route: 065
  25. XGEVA [Concomitant]
     Active Substance: DENOSUMAB
     Dosage: 120 MG, QMO
     Route: 058
     Dates: start: 20190319, end: 201904
  26. ZOFRAN [Concomitant]
     Active Substance: ONDANSETRON HYDROCHLORIDE
     Indication: Product used for unknown indication
     Dosage: UNK
     Route: 065
     Dates: start: 20161115, end: 20200417
  27. ZOFRAN [Concomitant]
     Active Substance: ONDANSETRON HYDROCHLORIDE
     Dosage: 4 MG, QD
     Route: 065
     Dates: start: 20200228, end: 20200228
  28. ACETAMINOPHEN [Concomitant]
     Active Substance: ACETAMINOPHEN
     Indication: Metastases to central nervous system
     Dosage: UNK
     Route: 065
     Dates: start: 20170609, end: 20200417
  29. DEXAMETHASONE [Concomitant]
     Active Substance: DEXAMETHASONE
     Indication: Product used for unknown indication
     Dosage: 8 MG (0.5 DAY)
     Route: 065
     Dates: start: 20170330, end: 20200417
  30. DEXAMETHASONE [Concomitant]
     Active Substance: DEXAMETHASONE
     Dosage: 8 MG, QD
     Route: 065
     Dates: start: 20170530, end: 20170530
  31. DEXAMETHASONE [Concomitant]
     Active Substance: DEXAMETHASONE
     Dosage: 4 MG, QD
     Route: 065
     Dates: start: 20200303, end: 20200309
  32. DEXAMETHASONE [Concomitant]
     Active Substance: DEXAMETHASONE
     Dosage: 40 MG, QD
     Route: 065
     Dates: start: 20200229, end: 20200302
  33. MIRANAX [Concomitant]
     Indication: Product used for unknown indication
     Dosage: UNK
     Route: 065
     Dates: start: 20161115, end: 20200417
  34. ZOLPIDEM [Concomitant]
     Active Substance: ZOLPIDEM TARTRATE
     Indication: Product used for unknown indication
     Dosage: 10 MG
     Route: 065
     Dates: start: 20200228, end: 20200417
  35. FRAGMIN [Concomitant]
     Active Substance: DALTEPARIN SODIUM
     Indication: Product used for unknown indication
     Dosage: UNK,
     Route: 065
     Dates: start: 20200228, end: 20200311
  36. POLYETHYLENE GLYCOL 3350\POTASSIUM CHLORIDE\SODIUM BICARBONATE\SODIUM [Concomitant]
     Active Substance: POLYETHYLENE GLYCOL 3350\POTASSIUM CHLORIDE\SODIUM BICARBONATE\SODIUM CHLORIDE
     Indication: Product used for unknown indication
     Dosage: 13.8 G (0.5 DAY)
     Route: 065
     Dates: start: 20200306, end: 20200311
  37. LYRICA [Concomitant]
     Active Substance: PREGABALIN
     Indication: Product used for unknown indication
     Dosage: 75 MG, Q12H (0.5 DAY)
     Route: 065
     Dates: start: 20200225, end: 20200417
  38. MORPHINE [Concomitant]
     Active Substance: MORPHINE
     Indication: Product used for unknown indication
     Dosage: 10 MG, QD
     Route: 065
     Dates: start: 20170530, end: 20170530
  39. MORPHINE [Concomitant]
     Active Substance: MORPHINE
     Dosage: 5 MG
     Route: 065
     Dates: start: 20200225, end: 20200417
  40. ACETAMINOPHEN [Concomitant]
     Active Substance: ACETAMINOPHEN
     Indication: Product used for unknown indication
     Dosage: 1000 MG, QD
     Route: 065
     Dates: start: 20200228, end: 20200228

REACTIONS (8)
  - Spinal pain [Recovered/Resolved]
  - Vision blurred [Recovered/Resolved]
  - Dental fistula [Recovered/Resolved]
  - Chills [Recovered/Resolved]
  - Night sweats [Recovered/Resolved]
  - Spinal pain [Recovered/Resolved]
  - Dental fistula [Not Recovered/Not Resolved]
  - Nasopharyngitis [Recovered/Resolved]

NARRATIVE: CASE EVENT DATE: 20181112
